FAERS Safety Report 8540429-3 (Version None)
Quarter: 2012Q3

REPORT INFORMATION
  Report Type: 
  Country: None (occurrence: None)
  Receive Date: 20120726
  Receipt Date: 20111230
  Transmission Date: 20120928
  Serious: No
  Sender: FDA-Public Use
  Company Number: US-ASTRAZENECA-2011SE38875

PATIENT
  Age: 52 Year
  Sex: Male
  Weight: 108 kg

DRUGS (8)
  1. SEROQUEL [Suspect]
     Indication: SLEEP DISORDER
     Route: 048
     Dates: start: 20060101
  2. LISINOPRIL [Concomitant]
  3. METFORMIN HCL [Concomitant]
  4. SEROQUEL [Suspect]
     Indication: MANIA
     Route: 048
     Dates: start: 20060101
  5. CARVEDILOL [Concomitant]
  6. SEROQUEL [Suspect]
     Indication: DEPRESSION
     Route: 048
     Dates: start: 20060101
  7. SEROQUEL [Suspect]
     Indication: BIPOLAR DISORDER
     Route: 048
     Dates: start: 20060101
  8. GLIPIZIDE [Concomitant]

REACTIONS (4)
  - OFF LABEL USE [None]
  - DRUG DOSE OMISSION [None]
  - ARTHRITIS [None]
  - INSOMNIA [None]
